FAERS Safety Report 21438103 (Version 1)
Quarter: 2022Q4

REPORT INFORMATION
  Report Type: Spontaneous
  Country: BR (occurrence: BR)
  Receive Date: 20221011
  Receipt Date: 20221011
  Transmission Date: 20230112
  Serious: Yes (Other)
  Sender: FDA-Public Use
  Company Number: BR-Melinta Therapeutics, LLC-BR-MLNT-22-00171

PATIENT
  Age: 26 Year

DRUGS (9)
  1. DELAFLOXACIN [Suspect]
     Active Substance: DELAFLOXACIN
     Indication: Eosinophilic fasciitis
     Route: 042
  2. DELAFLOXACIN [Suspect]
     Active Substance: DELAFLOXACIN
     Route: 042
  3. DELAFLOXACIN [Suspect]
     Active Substance: DELAFLOXACIN
     Route: 042
  4. LINEZOLID [Suspect]
     Active Substance: LINEZOLID
     Indication: Staphylococcal sepsis
     Dosage: NOT PROVIDED.
  5. LINEZOLID [Suspect]
     Active Substance: LINEZOLID
     Indication: Septic shock
  6. LINEZOLID [Suspect]
     Active Substance: LINEZOLID
     Indication: Pneumonia
  7. CIPROFLOXACIN [Concomitant]
     Active Substance: CIPROFLOXACIN
     Indication: Staphylococcal sepsis
     Dosage: NOT PROVIDED.
  8. CIPROFLOXACIN [Concomitant]
     Active Substance: CIPROFLOXACIN
     Indication: Septic shock
  9. CIPROFLOXACIN [Concomitant]
     Active Substance: CIPROFLOXACIN
     Indication: Pneumonia

REACTIONS (2)
  - Renal impairment [Unknown]
  - Product use issue [Unknown]

NARRATIVE: CASE EVENT DATE: 20220914
